FAERS Safety Report 7903687-1 (Version None)
Quarter: 2011Q4

REPORT INFORMATION
  Report Type: 
  Country: None (occurrence: None)
  Receive Date: 20111109
  Receipt Date: 20111103
  Transmission Date: 20120403
  Serious: Yes (Hospitalization)
  Sender: FDA-Public Use
  Company Number: US-JNJFOC-20111101831

PATIENT
  Sex: Female

DRUGS (3)
  1. TRUVADA [Suspect]
     Indication: HIV INFECTION
     Route: 065
  2. PREZISTA [Suspect]
     Indication: HIV INFECTION
     Route: 065
  3. NORVIR [Suspect]
     Indication: HIV INFECTION
     Route: 065

REACTIONS (2)
  - HEPATITIS [None]
  - HEPATITIS A VIRUS TEST POSITIVE [None]
